FAERS Safety Report 26074656 (Version 1)
Quarter: 2025Q4

REPORT INFORMATION
  Report Type: Spontaneous
  Country: EU (occurrence: EU)
  Receive Date: 20251121
  Receipt Date: 20251121
  Transmission Date: 20260118
  Serious: Yes (Hospitalization)
  Sender: RANBAXY
  Company Number: EU-AFSSAPS-BX2025001217

PATIENT
  Age: 60 Year
  Sex: Female
  Weight: 105 kg

DRUGS (4)
  1. IBUPROFEN [Suspect]
     Active Substance: IBUPROFEN
     Indication: Spinal pain
     Dosage: UNK
     Route: 048
     Dates: start: 20240920, end: 20240924
  2. ACETAMINOPHEN [Suspect]
     Active Substance: ACETAMINOPHEN
     Indication: Spinal pain
     Dosage: UNK
     Route: 048
     Dates: start: 20240920, end: 20240924
  3. CODEINE [Suspect]
     Active Substance: CODEINE
     Indication: Spinal pain
     Dosage: UNK
     Route: 048
     Dates: start: 20240920, end: 20240924
  4. THIOCOLCHICOSIDE [Suspect]
     Active Substance: THIOCOLCHICOSIDE
     Indication: Spinal pain
     Dosage: UNK
     Route: 048
     Dates: start: 20240920, end: 20240924

REACTIONS (1)
  - Immune thrombocytopenia [Not Recovered/Not Resolved]

NARRATIVE: CASE EVENT DATE: 20241010
